FAERS Safety Report 11749342 (Version 67)
Quarter: 2020Q3

REPORT INFORMATION
  Report Type: Report from Study
  Country: CA (occurrence: CA)
  Receive Date: 20151118
  Receipt Date: 20200822
  Transmission Date: 20201102
  Serious: Yes (Death, Hospitalization, Other)
  Sender: FDA-Public Use
  Company Number: PHHY2015CA145746

PATIENT
  Age: 37 Year
  Sex: Male

DRUGS (11)
  1. METHADONE [Concomitant]
     Active Substance: METHADONE HYDROCHLORIDE
     Indication: PRODUCT USED FOR UNKNOWN INDICATION
     Dosage: 10 MG, TID
     Route: 065
     Dates: start: 20180320
  2. SANDOSTATIN LAR DEPOT [Suspect]
     Active Substance: OCTREOTIDE ACETATE
     Dosage: 20 MG, BIW (EVERY 2 WEEKS)
     Route: 030
     Dates: start: 20151204
  3. SANDOSTATIN LAR DEPOT [Suspect]
     Active Substance: OCTREOTIDE ACETATE
     Indication: PANCREATIC CARCINOMA
     Dosage: 30 MG, QMO (EVERY 4 WEEKS)
     Route: 030
     Dates: start: 20150911
  4. SANDOSTATIN LAR DEPOT [Suspect]
     Active Substance: OCTREOTIDE ACETATE
     Dosage: 30 MG, BIW (EVERY 2 WEEKS)
     Route: 030
  5. SANDOSTATIN LAR DEPOT [Suspect]
     Active Substance: OCTREOTIDE ACETATE
     Dosage: 40 MG, QMO (EVERY 4 WEEKS)
     Route: 030
     Dates: start: 20151030
  6. SANDOSTATIN LAR DEPOT [Suspect]
     Active Substance: OCTREOTIDE ACETATE
     Dosage: 30 MG, BIW (EVERY 2 WEEKS)
     Route: 030
     Dates: start: 20160212
  7. LOVENOX [Concomitant]
     Active Substance: ENOXAPARIN SODIUM
     Indication: THROMBOSIS
     Dosage: 80 MG, BID SELF INJECTION
     Route: 065
     Dates: start: 2017
  8. SANDOSTATIN LAR DEPOT [Suspect]
     Active Substance: OCTREOTIDE ACETATE
     Dosage: UNK
     Route: 030
     Dates: start: 20170425
  9. SANDOSTATIN LAR DEPOT [Suspect]
     Active Substance: OCTREOTIDE ACETATE
     Indication: NEUROENDOCRINE TUMOUR
     Dosage: 30 MG, BIW (EVERY 2 WEEKS)
     Route: 030
  10. SANDOSTATIN LAR DEPOT [Suspect]
     Active Substance: OCTREOTIDE ACETATE
     Dosage: 30 MG, BIW (EVERY 2 WEEKS)
     Route: 030
     Dates: start: 20190315
  11. MORPHINE [Suspect]
     Active Substance: MORPHINE
     Indication: PAIN
     Dosage: UNK (PUMP)
     Route: 065

REACTIONS (75)
  - Loss of consciousness [Unknown]
  - Paraesthesia [Unknown]
  - Injection site pain [Recovered/Resolved]
  - Abdominal discomfort [Unknown]
  - Inappropriate schedule of product administration [Unknown]
  - Hypertension [Unknown]
  - Illness [Recovering/Resolving]
  - Pancreatic carcinoma [Unknown]
  - Blood calcium decreased [Unknown]
  - Peripheral swelling [Unknown]
  - Sneezing [Unknown]
  - Feeling abnormal [Unknown]
  - Vomiting [Not Recovered/Not Resolved]
  - Contusion [Not Recovered/Not Resolved]
  - Abdominal mass [Unknown]
  - Blood glucose increased [Unknown]
  - Withdrawal syndrome [Unknown]
  - Nausea [Not Recovered/Not Resolved]
  - Blood glucose fluctuation [Recovered/Resolved]
  - Metastases to lung [Unknown]
  - Fall [Unknown]
  - Eating disorder [Unknown]
  - Hypersomnia [Unknown]
  - Injection site pain [Unknown]
  - Injection site pain [Recovered/Resolved]
  - Seizure [Unknown]
  - Cellulitis [Unknown]
  - Localised infection [Recovering/Resolving]
  - Nasopharyngitis [Unknown]
  - Eye injury [Not Recovered/Not Resolved]
  - Asthenia [Not Recovered/Not Resolved]
  - Injection site discomfort [Unknown]
  - Pain [Recovering/Resolving]
  - Oxygen consumption decreased [Unknown]
  - Dehydration [Unknown]
  - Abdominal abscess [Recovering/Resolving]
  - Cough [Unknown]
  - Pulmonary embolism [Unknown]
  - Metastases to liver [Unknown]
  - Biliary obstruction [Unknown]
  - Muscle spasms [Unknown]
  - Hypoaesthesia [Unknown]
  - Somnambulism [Not Recovered/Not Resolved]
  - Injection site warmth [Unknown]
  - Product use in unapproved indication [Unknown]
  - Needle issue [Unknown]
  - Device toxicity [Unknown]
  - Myocardial infarction [Unknown]
  - Lower respiratory tract infection [Recovering/Resolving]
  - Renal impairment [Unknown]
  - Foot fracture [Unknown]
  - Restlessness [Recovered/Resolved]
  - Pallor [Unknown]
  - Liver function test abnormal [Unknown]
  - Discomfort [Unknown]
  - Fatigue [Unknown]
  - Headache [Recovering/Resolving]
  - Agitation [Not Recovered/Not Resolved]
  - Back injury [Not Recovered/Not Resolved]
  - Hepatic pain [Unknown]
  - Injection site mass [Recovered/Resolved]
  - Abdominal distension [Unknown]
  - Death [Fatal]
  - Device occlusion [Unknown]
  - Abdominal pain [Unknown]
  - Blood glucose decreased [Unknown]
  - Stress [Unknown]
  - Malignant neoplasm progression [Unknown]
  - Abdominal pain upper [Unknown]
  - Liver disorder [Unknown]
  - Arthralgia [Unknown]
  - Blister [Recovering/Resolving]
  - Nasal congestion [Unknown]
  - Injection site mass [Not Recovered/Not Resolved]
  - Injection site pain [Recovered/Resolved]

NARRATIVE: CASE EVENT DATE: 201510
